FAERS Safety Report 10578493 (Version 1)
Quarter: 2014Q4

REPORT INFORMATION
  Report Type: Spontaneous
  Country: US (occurrence: None)
  Receive Date: 20141106
  Receipt Date: 20141106
  Transmission Date: 20150529
  Serious: Yes (Other)
  Sender: FDA-Public Use
  Company Number: ALL1-2013-08550

PATIENT
  Age: 14 Year
  Sex: Male

DRUGS (2)
  1. INTUNIV [Suspect]
     Active Substance: GUANFACINE HYDROCHLORIDE
     Indication: PRODUCT USED FOR UNKNOWN INDICATION
     Dosage: 4 MG, UNKNOWN, ORAL
     Route: 048
  2. (CLONIDINE CLONIDINE HYDROCHLORIDE) [Concomitant]

REACTIONS (2)
  - Hypotension [None]
  - Syncope [None]
